FAERS Safety Report 5175255-9 (Version None)
Quarter: 2006Q4

REPORT INFORMATION
  Report Type: 
  Country: None (occurrence: None)
  Receive Date: 20061211
  Receipt Date: 20061211
  Transmission Date: 20070319
  Serious: No
  Sender: FDA-Public Use
  Company Number: None

PATIENT
  Sex: Female
  Weight: 69.8539 kg

DRUGS (1)
  1. ZOCOR [Suspect]
     Dosage: ONE DAILY
     Dates: start: 20060901, end: 20061001

REACTIONS (1)
  - MUSCLE SPASMS [None]
